FAERS Safety Report 17467421 (Version 4)
Quarter: 2022Q1

REPORT INFORMATION
  Report Type: Spontaneous
  Country: US (occurrence: US)
  Receive Date: 20200227
  Receipt Date: 20220215
  Transmission Date: 20220423
  Serious: No
  Sender: FDA-Public Use
  Company Number: US-PFIZER INC-2020085129

PATIENT
  Age: 12 Year
  Sex: Male

DRUGS (2)
  1. GENOTROPIN [Suspect]
     Active Substance: SOMATROPIN
     Indication: Growth disorder
     Dosage: 1.2 MG, ALTERNATE DAY (1.2MG ALTERNATING WITH 1.4MG DAILY)
  2. GENOTROPIN [Suspect]
     Active Substance: SOMATROPIN
     Dosage: 1.4 MG, ALTERNATE DAY (1.2MG ALTERNATING WITH 1.4MG DAILY)

REACTIONS (3)
  - Therapeutic product effect incomplete [Unknown]
  - Drug dose omission by device [Unknown]
  - Device use issue [Unknown]
